FAERS Safety Report 4275181-3 (Version None)
Quarter: 2004Q1

REPORT INFORMATION
  Report Type: 
  Country: None (occurrence: None)
  Receive Date: 20040116
  Receipt Date: 20031229
  Transmission Date: 20041129
  Serious: Yes (Death)
  Sender: FDA-Public Use
  Company Number: RENA-10701

PATIENT
  Age: 59 Year
  Sex: Male
  Weight: 55 kg

DRUGS (8)
  1. RENAGEL [Suspect]
     Indication: HYPERPHOSPHATAEMIA
     Dosage: 3 G QD PO
     Dates: start: 20030825, end: 20030928
  2. AMISALIN [Concomitant]
  3. CALCIUM ACETATE [Concomitant]
  4. CALCIUM CARBONATE [Concomitant]
  5. NITROL [Concomitant]
  6. GLYCERYL TRINITRATE [Concomitant]
  7. LAXOBERON [Concomitant]
  8. ACETYLSALICYLIC ACID SRT [Concomitant]

REACTIONS (16)
  - ABNORMAL FAECES [None]
  - ASCITES [None]
  - CONSTIPATION [None]
  - DIARRHOEA [None]
  - DISSEMINATED INTRAVASCULAR COAGULATION [None]
  - GASTROENTERITIS [None]
  - HEPATIC FAILURE [None]
  - ILEUS [None]
  - INTESTINAL PERFORATION [None]
  - NASOPHARYNGITIS [None]
  - PERITONITIS [None]
  - PLEURAL EFFUSION [None]
  - PNEUMONIA [None]
  - POST PROCEDURAL COMPLICATION [None]
  - SEPSIS [None]
  - VOMITING [None]
